FAERS Safety Report 7926134-2 (Version None)
Quarter: 2011Q4

REPORT INFORMATION
  Report Type: 
  Country: None (occurrence: None)
  Receive Date: 20111118
  Receipt Date: 20110419
  Transmission Date: 20120403
  Serious: No
  Sender: FDA-Public Use
  Company Number: US-AMGEN-USASP2011020696

PATIENT
  Sex: Male

DRUGS (1)
  1. ENBREL [Suspect]
     Indication: RHEUMATOID ARTHRITIS
     Dosage: 50 MG, QWK
     Dates: start: 20110301

REACTIONS (8)
  - INJECTION SITE PRURITUS [None]
  - FATIGUE [None]
  - INJECTION SITE RASH [None]
  - INJECTION SITE ERYTHEMA [None]
  - ABDOMINAL DISCOMFORT [None]
  - ARTHRALGIA [None]
  - BACK PAIN [None]
  - INJECTION SITE INDURATION [None]
